FAERS Safety Report 16715271 (Version 1)
Quarter: 2019Q3

REPORT INFORMATION
  Report Type: Spontaneous
  Country: IT (occurrence: IT)
  Receive Date: 20190819
  Receipt Date: 20190819
  Transmission Date: 20191005
  Serious: Yes (Other)
  Sender: FDA-Public Use
  Company Number: IT-TEVA-2019-IT-1091852

PATIENT
  Age: 66 Year
  Sex: Female

DRUGS (2)
  1. RAMIPRIL RATIOPHARM [Suspect]
     Active Substance: RAMIPRIL
     Indication: BLOOD PRESSURE MEASUREMENT
     Dosage: 2.5 MILLIGRAM DAILY; IN THE EVENING
     Route: 065
  2. NOBISTAR [Concomitant]
     Active Substance: NEBIVOLOL HYDROCHLORIDE
     Dosage: 1 DOSAGE FORMS DAILY; IN THE MORNING

REACTIONS (4)
  - Paralysis [Not Recovered/Not Resolved]
  - Loss of control of legs [Not Recovered/Not Resolved]
  - Hypoaesthesia [Not Recovered/Not Resolved]
  - Impaired driving ability [Not Recovered/Not Resolved]

NARRATIVE: CASE EVENT DATE: 20190808
